FAERS Safety Report 20623557 (Version 2)
Quarter: 2022Q1

REPORT INFORMATION
  Report Type: Spontaneous
  Country: US (occurrence: US)
  Receive Date: 20220322
  Receipt Date: 20220328
  Transmission Date: 20220423
  Serious: Yes (Hospitalization)
  Sender: FDA-Public Use
  Company Number: US-ALLERGAN-2209199US

PATIENT
  Sex: Female
  Weight: 68.49 kg

DRUGS (11)
  1. FLUOROMETHOLONE [Suspect]
     Active Substance: FLUOROMETHOLONE
     Indication: Vitamin A deficiency
     Dosage: 2 GTT, BID
     Dates: start: 20211120
  2. FLUOROMETHOLONE [Suspect]
     Active Substance: FLUOROMETHOLONE
     Indication: Corneal disorder
  3. GABAPENTIN [Concomitant]
     Active Substance: GABAPENTIN
     Dosage: 1800 MG, BID
     Route: 048
  4. OXYCODONE [Concomitant]
     Active Substance: OXYCODONE
     Dosage: 15 MG, 7X A DAY
  5. RETINOL [Concomitant]
     Active Substance: RETINOL
     Dosage: 10000 IU, QD
     Route: 048
  6. VITAMIN D NOS [Concomitant]
     Active Substance: VITAMIN D NOS
     Dosage: 20000 IU, QD
  7. FOLIC ACID\IRON\MINERALS\VITAMINS [Concomitant]
     Active Substance: FOLIC ACID\IRON\MINERALS\VITAMINS
     Dosage: 2 DF, QD
  8. ANGELIQ [Concomitant]
     Active Substance: DROSPIRENONE\ESTRADIOL
     Indication: Oral contraception
     Dosage: 1 DF, QD
  9. POTASSIUM [Concomitant]
     Active Substance: POTASSIUM
     Indication: Malnutrition
     Dosage: UNK UNK, BID
  10. BUMEX [Concomitant]
     Active Substance: BUMETANIDE
     Indication: Product used for unknown indication
     Dosage: 5 MG, QID
  11. SYNTHROID [Concomitant]
     Active Substance: LEVOTHYROXINE SODIUM
     Indication: Product used for unknown indication
     Dosage: 60 MG, QD

REACTIONS (3)
  - Malnutrition [Unknown]
  - Alcohol test positive [Unknown]
  - Off label use [Unknown]

NARRATIVE: CASE EVENT DATE: 20211120
